FAERS Safety Report 10135899 (Version 2)
Quarter: 2014Q3

REPORT INFORMATION
  Report Type: Report from Study
  Country: DE (occurrence: DE)
  Receive Date: 20140428
  Receipt Date: 20140915
  Transmission Date: 20150326
  Serious: Yes (Hospitalization)
  Sender: FDA-Public Use
  Company Number: PHHY2014DE051086

PATIENT
  Sex: Female
  Weight: 51 kg

DRUGS (9)
  1. IBUPROFEN. [Concomitant]
     Active Substance: IBUPROFEN
     Indication: PAIN
     Dosage: 600 MG, PRN
     Route: 048
     Dates: start: 20100118
  2. GILENYA [Suspect]
     Active Substance: FINGOLIMOD HYDROCHLORIDE
     Indication: MULTIPLE SCLEROSIS
     Dosage: 0.5 MG, QD
     Route: 048
     Dates: start: 20111109
  3. OPIPRAMOL [Concomitant]
     Active Substance: OPIPRAMOL
     Indication: DEPRESSION
     Dosage: 100 MG, 2X0.5
     Route: 048
     Dates: start: 20100621, end: 20110328
  4. BENZOCAINE. [Concomitant]
     Active Substance: BENZOCAINE
     Indication: OROPHARYNGEAL PAIN
     Route: 048
     Dates: start: 20110809, end: 201109
  5. KATADOLON [Concomitant]
     Active Substance: FLUPIRTINE
     Indication: BACK PAIN
     Dosage: 100 MG, QD
     Route: 048
     Dates: start: 20120313, end: 201205
  6. MICTONORM [Concomitant]
     Active Substance: PROPIVERINE HYDROCHLORIDE
     Indication: NEUROGENIC BLADDER
     Dosage: 15 MG, PRN
     Route: 048
     Dates: start: 20121119
  7. OPIPRAMOL [Concomitant]
     Active Substance: OPIPRAMOL
     Dosage: 50 MG, QD
     Route: 048
     Dates: start: 20110328
  8. OMEPRAZOLE. [Concomitant]
     Active Substance: OMEPRAZOLE
     Indication: ABDOMINAL PAIN UPPER
     Route: 048
     Dates: start: 20100727
  9. KATADOLON [Concomitant]
     Active Substance: FLUPIRTINE
     Indication: RADICULAR SYNDROME

REACTIONS (1)
  - Systemic lupus erythematosus [Not Recovered/Not Resolved]

NARRATIVE: CASE EVENT DATE: 20140221
